FAERS Safety Report 5662306-8 (Version None)
Quarter: 2008Q1

REPORT INFORMATION
  Report Type: 
  Country: None (occurrence: None)
  Receive Date: 20080312
  Receipt Date: 20080229
  Transmission Date: 20080703
  Serious: Yes (Other)
  Sender: FDA-Public Use
  Company Number: CA-PFIZER INC-2008019760

PATIENT
  Age: 43 Year
  Sex: Female

DRUGS (2)
  1. LYRICA [Suspect]
     Indication: FIBROMYALGIA
     Route: 048
     Dates: start: 20070717, end: 20071010
  2. ZYTRAM [Concomitant]

REACTIONS (6)
  - CONVULSION [None]
  - MUSCLE TWITCHING [None]
  - OEDEMA PERIPHERAL [None]
  - SUICIDAL IDEATION [None]
  - TONGUE BITING [None]
  - TREMOR [None]
